FAERS Safety Report 24980174 (Version 4)
Quarter: 2025Q1

REPORT INFORMATION
  Report Type: Report from Study
  Country: CN (occurrence: CN)
  Receive Date: 20250218
  Receipt Date: 20250321
  Transmission Date: 20250409
  Serious: Yes (Death, Life-Threatening, Hospitalization)
  Sender: BIOGEN
  Company Number: CN-BAT-2025BAT000101

PATIENT
  Age: 60 Year
  Sex: Male
  Weight: 68.5 kg

DRUGS (12)
  1. TOFIDENCE [Suspect]
     Active Substance: TOCILIZUMAB-BAVI
     Indication: Prophylaxis
     Route: 041
     Dates: start: 20250122
  2. INVESTIGATIONAL PRODUCT [Suspect]
     Active Substance: INVESTIGATIONAL PRODUCT
     Indication: Hepatic cancer
     Route: 041
     Dates: start: 20250122
  3. VITAMIN B6 [Concomitant]
     Active Substance: PYRIDOXINE HYDROCHLORIDE
     Indication: Vitamin supplementation
     Route: 041
     Dates: start: 20250124, end: 20250125
  4. ASCORBIC ACID [Concomitant]
     Active Substance: ASCORBIC ACID
     Indication: Vitamin supplementation
     Route: 041
     Dates: start: 20250124, end: 20250125
  5. CIMETIDINE [Concomitant]
     Active Substance: CIMETIDINE
     Indication: Prophylaxis of nausea and vomiting
     Route: 041
     Dates: start: 20250123, end: 20250125
  6. DIPHENHYDRAMINE HYDROCHLORIDE [Concomitant]
     Active Substance: DIPHENHYDRAMINE HYDROCHLORIDE
     Indication: Prophylaxis of nausea and vomiting
     Route: 030
     Dates: start: 20250123, end: 20250125
  7. CELECOXIB [Concomitant]
     Active Substance: CELECOXIB
     Indication: Tumour pain
     Route: 048
     Dates: start: 20250125
  8. TENOFOVIR DISOPROXIL FUMARATE [Concomitant]
     Active Substance: TENOFOVIR DISOPROXIL FUMARATE
     Indication: Hepatitis B
     Dosage: 1 TABLET
     Route: 048
     Dates: start: 20250123, end: 20250125
  9. Ginkgo Cough Tablets [Concomitant]
     Indication: Cough
     Dosage: 3 TABLET
     Route: 048
     Dates: start: 20250201, end: 20250205
  10. Compound paracetamol and amantadine hydrochloride tablets [Concomitant]
     Indication: Nasopharyngitis
     Dosage: 1 TABLET
     Route: 048
     Dates: start: 20250201, end: 20250205
  11. Ganmaoling Granules [Concomitant]
     Indication: Nasopharyngitis
     Dosage: 1 SACHET
     Route: 048
     Dates: start: 20250129, end: 20250131
  12. Nifedipine Sustained-release Tablets (II) [Concomitant]
     Indication: Hypertension
     Dosage: 1 TABLET
     Route: 048
     Dates: start: 20250126

REACTIONS (3)
  - Hepatic function abnormal [Fatal]
  - Laryngeal pain [Recovering/Resolving]
  - Off label use [Unknown]

NARRATIVE: CASE EVENT DATE: 20250122
